FAERS Safety Report 9548768 (Version 1)
Quarter: 2013Q2

REPORT INFORMATION
  Report Type: Spontaneous
  Country: US (occurrence: None)
  Receive Date: 20130607
  Receipt Date: 20130607
  Transmission Date: 20140414
  Serious: Yes (Hospitalization)
  Sender: FDA-Public Use
  Company Number: 086339

PATIENT
  Sex: Female
  Weight: 37.7 kg

DRUGS (2)
  1. ROTIGOTINE [Suspect]
     Indication: PARKINSON^S DISEASE
     Dosage: (1 MG QD, TRANSDERMAL)
     Route: 062
     Dates: start: 20130321, end: 2013
  2. SINEMET [Concomitant]

REACTIONS (5)
  - Application site reaction [None]
  - Tremor [None]
  - Nausea [None]
  - Anxiety [None]
  - Gait disturbance [None]
